FAERS Safety Report 9492185 (Version 1)
Quarter: 2013Q3

REPORT INFORMATION
  Report Type: Spontaneous
  Country: US (occurrence: US)
  Receive Date: 20130830
  Receipt Date: 20130830
  Transmission Date: 20140515
  Serious: Yes (Hospitalization, Other)
  Sender: FDA-Public Use
  Company Number: US-ACTAVIS-2013-14978

PATIENT
  Sex: Female

DRUGS (10)
  1. KETAMINE [Suspect]
     Indication: ANALGESIC THERAPY
     Dosage: 6 MG/HOUR
     Route: 042
  2. LIDOCAINE HYDROCHLORIDE (WATSON LABORATORIES) [Suspect]
     Indication: ANALGESIC THERAPY
     Dosage: 11.5 MG/HOUR
     Route: 042
  3. MAGNESIUM SULFATE [Suspect]
     Indication: ANAESTHESIA
     Dosage: 2 G, BOLUS
     Route: 042
  4. HETASTARCH [Concomitant]
     Indication: PRODUCT USED FOR UNKNOWN INDICATION
     Dosage: 6 MG/KG, 6%
     Route: 065
  5. ASPIRIN [Concomitant]
     Indication: CORONARY ARTERY DISEASE
     Dosage: UNK
     Route: 065
  6. LINAGLIPTIN [Concomitant]
     Indication: TYPE 2 DIABETES MELLITUS
     Dosage: UNK
     Route: 065
  7. VALSARTAN [Concomitant]
     Indication: HYPERTENSION
     Dosage: UNK
     Route: 065
  8. FUROSEMIDE [Concomitant]
     Indication: HYPERTENSION
     Dosage: UNK
     Route: 065
  9. NIFEDIPINE [Concomitant]
     Indication: HYPERTENSION
     Dosage: UNK
     Route: 065
  10. ATENOLOL [Concomitant]
     Indication: HYPERTENSION
     Dosage: UNK
     Route: 065

REACTIONS (2)
  - Hepatic haemorrhage [Unknown]
  - Platelet aggregation inhibition [Unknown]
